FAERS Safety Report 6181960-8 (Version None)
Quarter: 2009Q2

REPORT INFORMATION
  Report Type: 
  Country: None (occurrence: None)
  Receive Date: 20090505
  Receipt Date: 20090420
  Transmission Date: 20091009
  Serious: Yes (Hospitalization)
  Sender: FDA-Public Use
  Company Number: 2009S1006826

PATIENT
  Age: 63 Year
  Sex: Male

DRUGS (4)
  1. CEFTRIAXONE [Suspect]
     Indication: DRUG USE FOR UNKNOWN INDICATION
  2. DOXYCYCLINE HYCLATE [Suspect]
     Indication: DRUG USE FOR UNKNOWN INDICATION
  3. MEROPENEM [Suspect]
     Indication: DRUG USE FOR UNKNOWN INDICATION
  4. VANCOMYCIN HCL [Suspect]
     Indication: DRUG USE FOR UNKNOWN INDICATION
     Dosage: INTRAVENOUS
     Route: 042

REACTIONS (3)
  - DIARRHOEA [None]
  - NOSOCOMIAL INFECTION [None]
  - STAPHYLOCOCCAL INFECTION [None]
